FAERS Safety Report 15665509 (Version 5)
Quarter: 2019Q2

REPORT INFORMATION
  Report Type: Report from Study
  Country: CO (occurrence: CO)
  Receive Date: 20181128
  Receipt Date: 20190530
  Transmission Date: 20190711
  Serious: Yes (Hospitalization)
  Sender: FDA-Public Use
  Company Number: CO-JNJFOC-20180526438

PATIENT
  Age: 65 Year
  Sex: Female
  Weight: 59 kg

DRUGS (3)
  1. IMBRUVICA [Suspect]
     Active Substance: IBRUTINIB
     Indication: CHRONIC LYMPHOCYTIC LEUKAEMIA
     Route: 048
     Dates: start: 201904
  2. IMBRUVICA [Suspect]
     Active Substance: IBRUTINIB
     Indication: CHRONIC LYMPHOCYTIC LEUKAEMIA
     Route: 048
     Dates: start: 20180102, end: 201904
  3. OLANZAPINE. [Suspect]
     Active Substance: OLANZAPINE
     Indication: PRODUCT USED FOR UNKNOWN INDICATION
     Route: 065

REACTIONS (21)
  - Subcutaneous abscess [Not Recovered/Not Resolved]
  - Tongue ulceration [Not Recovered/Not Resolved]
  - Pain in extremity [Not Recovered/Not Resolved]
  - Bipolar disorder [Not Recovered/Not Resolved]
  - Oedema peripheral [Recovering/Resolving]
  - Gastroenteritis [Recovering/Resolving]
  - Cardiovascular disorder [Recovering/Resolving]
  - Asthenia [Recovering/Resolving]
  - Weight decreased [Unknown]
  - Skin lesion [Not Recovered/Not Resolved]
  - Fatigue [Recovering/Resolving]
  - Rash erythematous [Not Recovered/Not Resolved]
  - Infection [Recovering/Resolving]
  - Influenza like illness [Recovering/Resolving]
  - Inflammation [Recovering/Resolving]
  - Gastrooesophageal reflux disease [Recovering/Resolving]
  - Muscle spasms [Not Recovered/Not Resolved]
  - Insomnia [Unknown]
  - Pharyngeal ulceration [Not Recovered/Not Resolved]
  - Gait disturbance [Recovering/Resolving]
  - Nervousness [Recovering/Resolving]

NARRATIVE: CASE EVENT DATE: 2018
